FAERS Safety Report 10015811 (Version 4)
Quarter: 2014Q3

REPORT INFORMATION
  Report Type: Spontaneous
  Country: US (occurrence: US)
  Receive Date: 20140317
  Receipt Date: 20140717
  Transmission Date: 20150326
  Serious: Yes (Other)
  Sender: FDA-Public Use
  Company Number: US-GLAXOSMITHKLINE-A1064356A

PATIENT
  Age: 68 Year
  Sex: Male

DRUGS (4)
  1. VOTRIENT [Suspect]
     Active Substance: PAZOPANIB HYDROCHLORIDE
     Indication: RENAL CELL CARCINOMA
     Dosage: 200MG FOUR TIMES PER DAY
     Route: 048
     Dates: start: 20140110
  2. B VITAMINS [Concomitant]
  3. FISH OIL [Concomitant]
     Active Substance: FISH OIL
  4. DIETARY SUPPLEMENT [Concomitant]
     Active Substance: DIETARY SUPPLEMENT

REACTIONS (8)
  - Oral mucosal exfoliation [Not Recovered/Not Resolved]
  - Nausea [Recovering/Resolving]
  - Asthenia [Recovering/Resolving]
  - Eye haemorrhage [Recovering/Resolving]
  - Lacrimation increased [Recovering/Resolving]
  - Dizziness [Recovering/Resolving]
  - Diarrhoea [Not Recovered/Not Resolved]
  - Liver function test abnormal [Recovering/Resolving]

NARRATIVE: CASE EVENT DATE: 201402
